FAERS Safety Report 22945898 (Version 6)
Quarter: 2025Q3

REPORT INFORMATION
  Report Type: Report from Study
  Country: JP (occurrence: JP)
  Receive Date: 20230914
  Receipt Date: 20250710
  Transmission Date: 20251020
  Serious: Yes (Hospitalization, Other)
  Sender: TAKEDA
  Company Number: JP-TAKEDA-2022TJP069270

PATIENT
  Age: 62 Year
  Sex: Male
  Weight: 60.7 kg

DRUGS (19)
  1. TEDUGLUTIDE [Suspect]
     Active Substance: TEDUGLUTIDE
     Indication: Short-bowel syndrome
     Dates: start: 20220720, end: 20220731
  2. TEDUGLUTIDE [Suspect]
     Active Substance: TEDUGLUTIDE
     Dates: start: 20220916, end: 20240501
  3. TEDUGLUTIDE [Suspect]
     Active Substance: TEDUGLUTIDE
  4. TEDUGLUTIDE [Suspect]
     Active Substance: TEDUGLUTIDE
  5. ENTYVIO [Concomitant]
     Active Substance: VEDOLIZUMAB
     Indication: Crohn^s disease
     Dosage: 300 MILLIGRAM, Q8WEEKS
     Dates: start: 20220818
  6. VONOPRAZAN FUMARATE [Concomitant]
     Active Substance: VONOPRAZAN FUMARATE
  7. MESALAMINE [Concomitant]
     Active Substance: MESALAMINE
     Indication: Crohn^s disease
     Dosage: 500 MILLIGRAM, TID
  8. IMURAN [Concomitant]
     Active Substance: AZATHIOPRINE
     Indication: Crohn^s disease
     Dosage: 50 MILLIGRAM, QD
  9. FAMOTIDINE [Concomitant]
     Active Substance: FAMOTIDINE
     Indication: Gastritis
     Dosage: 20 MILLIGRAM, QD
  10. CALONAL [Concomitant]
     Active Substance: ACETAMINOPHEN
     Indication: Pain
  11. LOXOPROFEN SODIUM [Concomitant]
     Active Substance: LOXOPROFEN SODIUM
     Indication: Pain
     Dosage: 60 MILLIGRAM, BID
  12. VIBEGRON [Concomitant]
     Active Substance: VIBEGRON
     Indication: Hypertonic bladder
     Dosage: 50 MILLIGRAM, QD
  13. HUMIRA [Concomitant]
     Active Substance: ADALIMUMAB
  14. BILASTINE [Concomitant]
     Active Substance: BILASTINE
  15. TAMSULOSIN HYDROCHLORIDE [Concomitant]
     Active Substance: TAMSULOSIN HYDROCHLORIDE
  16. MINOCYCLINE HYDROCHLORIDE [Concomitant]
     Active Substance: MINOCYCLINE HYDROCHLORIDE
  17. BUDESONIDE [Concomitant]
     Active Substance: BUDESONIDE
  18. FOSFOMYCIN CALCIUM [Concomitant]
     Active Substance: FOSFOMYCIN CALCIUM
  19. NAFTOPIDIL [Concomitant]
     Active Substance: NAFTOPIDIL

REACTIONS (4)
  - Vascular device infection [Recovered/Resolved]
  - Mechanical ileus [Recovered/Resolved]
  - Injection site reaction [Recovered/Resolved]
  - Injection site reaction [Recovered/Resolved]

NARRATIVE: CASE EVENT DATE: 20220801
